FAERS Safety Report 24755079 (Version 1)
Quarter: 2024Q4

REPORT INFORMATION
  Report Type: Spontaneous
  Country: FR (occurrence: FR)
  Receive Date: 20241219
  Receipt Date: 20241219
  Transmission Date: 20250114
  Serious: Yes (Hospitalization)
  Sender: PFIZER
  Company Number: None

PATIENT
  Age: 39 Year
  Sex: Female

DRUGS (1)
  1. VINCRISTINE SULFATE [Suspect]
     Active Substance: VINCRISTINE SULFATE
     Indication: Chemotherapy
     Dosage: 1 DF, SINGLE
     Route: 042
     Dates: start: 20230403

REACTIONS (1)
  - Dermo-hypodermitis [Recovered/Resolved]

NARRATIVE: CASE EVENT DATE: 20230404
